FAERS Safety Report 6944391-6 (Version None)
Quarter: 2010Q3

REPORT INFORMATION
  Report Type: 
  Country: None (occurrence: None)
  Receive Date: 20100827
  Receipt Date: 20100813
  Transmission Date: 20110219
  Serious: Yes (Hospitalization, Other)
  Sender: FDA-Public Use
  Company Number: US-JNJFOC-20100303794

PATIENT
  Sex: Female

DRUGS (10)
  1. LEVAQUIN [Suspect]
     Indication: PNEUMONIA
     Dosage: FOR 10 DAYS
     Route: 048
  2. LEVAQUIN [Suspect]
     Route: 042
  3. ZIAC [Concomitant]
     Route: 065
  4. VYTORIN [Concomitant]
     Route: 065
  5. SYNTHROID [Concomitant]
     Route: 065
  6. PROTONIX [Concomitant]
     Route: 065
  7. ASPIRIN [Concomitant]
     Route: 065
  8. BENICAR [Concomitant]
     Route: 065
  9. GINKO BILOBA [Concomitant]
     Route: 065
  10. CENTRUM SILVER [Concomitant]
     Route: 065

REACTIONS (5)
  - CATARACT [None]
  - EMOTIONAL DISORDER [None]
  - PAIN [None]
  - ROTATOR CUFF SYNDROME [None]
  - TENDON RUPTURE [None]
